FAERS Safety Report 26059310 (Version 2)
Quarter: 2025Q4

REPORT INFORMATION
  Report Type: Spontaneous
  Country: US (occurrence: US)
  Receive Date: 20251118
  Receipt Date: 20251128
  Transmission Date: 20260119
  Serious: Yes (Other)
  Sender: TEVA
  Company Number: US-TEVA-VS-3392870

PATIENT
  Age: 38 Year
  Sex: Female

DRUGS (2)
  1. GLATIRAMER ACETATE [Suspect]
     Active Substance: GLATIRAMER ACETATE
     Indication: Relapsing multiple sclerosis
     Route: 065
  2. DEVICE [Suspect]
     Active Substance: DEVICE
     Route: 065

REACTIONS (2)
  - Injection related reaction [Unknown]
  - Needle fatigue [Unknown]
